FAERS Safety Report 5515394-3 (Version None)
Quarter: 2007Q4

REPORT INFORMATION
  Report Type: 
  Country: None (occurrence: None)
  Receive Date: 20071113
  Receipt Date: 20070912
  Transmission Date: 20080405
  Serious: No
  Sender: FDA-Public Use
  Company Number: A0638573A

PATIENT
  Age: 79 Year
  Sex: Female
  Weight: 64.1 kg

DRUGS (10)
  1. COREG [Suspect]
     Dosage: 25MG TWICE PER DAY
     Route: 048
  2. LASIX [Concomitant]
     Dosage: 80MG IN THE MORNING
     Route: 048
  3. ASPIRIN [Concomitant]
     Indication: CORONARY ARTERY DISEASE
     Dosage: 81MG IN THE MORNING
  4. ALTACE [Concomitant]
  5. KETOCONAZOLE [Concomitant]
  6. SPIRONOLACTONE [Concomitant]
  7. PRAVACHOL [Concomitant]
     Dosage: 20MG PER DAY
     Route: 048
  8. LANTUS [Concomitant]
  9. ZAROXOLYN [Concomitant]
     Dosage: 2.5MG PER DAY
     Route: 048
  10. LISINOPRIL [Concomitant]
     Dosage: 20MG PER DAY
     Route: 048

REACTIONS (2)
  - DIARRHOEA [None]
  - PAIN [None]
